FAERS Safety Report 20933010 (Version 1)
Quarter: 2022Q2

REPORT INFORMATION
  Report Type: Spontaneous
  Country: FR (occurrence: FR)
  Receive Date: 20220608
  Receipt Date: 20220608
  Transmission Date: 20220721
  Serious: Yes (Hospitalization)
  Sender: FDA-Public Use
  Company Number: None

PATIENT
  Age: 69 Year
  Sex: Female
  Weight: 58 kg

DRUGS (13)
  1. EPIRUBICIN [Suspect]
     Active Substance: EPIRUBICIN
     Indication: Breast cancer
     Dosage: 20 MILLIGRAM (20 MG TAKEN ONCE)
     Route: 041
     Dates: start: 201811, end: 201811
  2. PACLITAXEL [Suspect]
     Active Substance: PACLITAXEL
     Indication: Breast cancer
     Dosage: 132 MILLIGRAM, QW (132 MG EVERY 7 DAYS)
     Route: 041
     Dates: start: 20190306, end: 20190523
  3. DOXORUBICIN HYDROCHLORIDE [Suspect]
     Active Substance: DOXORUBICIN HYDROCHLORIDE
     Indication: Breast cancer
     Dosage: 100 MILLIGRAM, Q21D (100 MG EVERY 21 DAYS)
     Route: 041
     Dates: start: 20181211, end: 20190213
  4. CYCLOPHOSPHAMIDE [Suspect]
     Active Substance: CYCLOPHOSPHAMIDE
     Indication: Breast cancer
     Dosage: 1000 MILLIGRAM, Q21D (1000MG EVERY 21 DAYS)
     Route: 041
     Dates: start: 20181211, end: 20190213
  5. TRASTUZUMAB [Concomitant]
     Active Substance: TRASTUZUMAB
     Indication: Breast cancer
     Dosage: 600 MILLIGRAM, Q21D (600 MG EVERY 21 DAYS)
     Route: 041
     Dates: start: 20190529, end: 20200318
  6. TRASTUZUMAB [Concomitant]
     Active Substance: TRASTUZUMAB
     Dosage: 357 MILLIGRAM, Q21D (357 MG EVERY 21 DAYS)
     Route: 041
     Dates: start: 20190327, end: 20190509
  7. TRASTUZUMAB [Concomitant]
     Active Substance: TRASTUZUMAB
     Dosage: 510 MILLIGRAM, TOTAL (510 MG IN LOADING DOSE)
     Route: 041
     Dates: start: 20190306, end: 20190306
  8. RAMIPRIL [Concomitant]
     Active Substance: RAMIPRIL
     Dosage: UNK
  9. APIXABAN [Concomitant]
     Active Substance: APIXABAN
     Dosage: UNK
  10. POLYETHYLENE GLYCOLS [Concomitant]
     Active Substance: POLYETHYLENE GLYCOLS
     Dosage: UNK
  11. ZOPICLONE [Concomitant]
     Active Substance: ZOPICLONE
     Dosage: UNK
  12. PANTOPRAZOLE [Concomitant]
     Active Substance: PANTOPRAZOLE
     Dosage: UNK
  13. LETROZOLE [Concomitant]
     Active Substance: LETROZOLE
     Dosage: UNK

REACTIONS (1)
  - Acute myeloid leukaemia [Not Recovered/Not Resolved]

NARRATIVE: CASE EVENT DATE: 20220425
